FAERS Safety Report 21855170 (Version 7)
Quarter: 2023Q4

REPORT INFORMATION
  Report Type: Report from Study
  Country: DE (occurrence: DE)
  Receive Date: 20230112
  Receipt Date: 20231228
  Transmission Date: 20240110
  Serious: Yes (Hospitalization)
  Sender: FDA-Public Use
  Company Number: DE-SA-SAC20230109000313

PATIENT
  Age: 64 Year
  Sex: Female
  Weight: 61 kg

DRUGS (14)
  1. ISATUXIMAB [Suspect]
     Active Substance: ISATUXIMAB
     Indication: Plasma cell myeloma
     Dosage: 580 MG
     Route: 042
     Dates: start: 20221230, end: 20221230
  2. ISATUXIMAB [Suspect]
     Active Substance: ISATUXIMAB
     Dosage: 580 MG
     Route: 042
     Dates: start: 20210907, end: 20210907
  3. ISATUXIMAB [Suspect]
     Active Substance: ISATUXIMAB
     Dosage: 590 MG
     Route: 042
     Dates: start: 20230712, end: 20230712
  4. CARFILZOMIB [Suspect]
     Active Substance: CARFILZOMIB
     Indication: Plasma cell myeloma
     Dosage: 73 MG
     Route: 042
     Dates: start: 20221230, end: 20221230
  5. CARFILZOMIB [Suspect]
     Active Substance: CARFILZOMIB
     Dosage: 73 MG
     Route: 042
     Dates: start: 20210907, end: 20210907
  6. CARFILZOMIB [Suspect]
     Active Substance: CARFILZOMIB
     Dosage: 115 MG
     Route: 042
     Dates: start: 20230712, end: 20230712
  7. LENALIDOMIDE [Suspect]
     Active Substance: LENALIDOMIDE
     Indication: Plasma cell myeloma
     Dosage: 15 MG
     Route: 048
     Dates: start: 20230104, end: 20230104
  8. LENALIDOMIDE [Suspect]
     Active Substance: LENALIDOMIDE
     Dosage: 15 MG
     Route: 048
     Dates: start: 20210907, end: 20210907
  9. LENALIDOMIDE [Suspect]
     Active Substance: LENALIDOMIDE
     Dosage: 15 MG
     Route: 048
     Dates: start: 20230721, end: 20230721
  10. DEXAMETHASONE [Concomitant]
     Active Substance: DEXAMETHASONE
     Indication: Plasma cell myeloma
     Dosage: 40 MG
     Route: 048
     Dates: start: 20221230, end: 20221230
  11. DEXAMETHASONE [Concomitant]
     Active Substance: DEXAMETHASONE
     Dosage: 40 MG
     Route: 048
     Dates: start: 20210907, end: 20210907
  12. DEXAMETHASONE [Concomitant]
     Active Substance: DEXAMETHASONE
     Dosage: 8 MG
     Dates: start: 20230712, end: 20230712
  13. ACYCLOVIR [Concomitant]
     Active Substance: ACYCLOVIR
     Indication: Antiviral prophylaxis
     Dosage: 400 MG, BID
     Route: 048
     Dates: start: 20210907, end: 20230722
  14. ATOVAQUONE [Concomitant]
     Active Substance: ATOVAQUONE
     Indication: Antibiotic prophylaxis
     Dosage: 750 MG, BID
     Route: 048
     Dates: start: 20211130, end: 20230722

REACTIONS (3)
  - Atypical pneumonia [Recovered/Resolved]
  - Upper respiratory tract infection [Recovered/Resolved]
  - Pneumonia [Recovered/Resolved]

NARRATIVE: CASE EVENT DATE: 20230105
